FAERS Safety Report 8123163-3 (Version None)
Quarter: 2012Q1

REPORT INFORMATION
  Report Type: 
  Country: None (occurrence: None)
  Receive Date: 20120208
  Receipt Date: 20120127
  Transmission Date: 20120608
  Serious: Yes (Other)
  Sender: FDA-Public Use
  Company Number: CA-JNJFOC-20120109247

PATIENT
  Age: 30 Year
  Sex: Female
  Weight: 55.34 kg

DRUGS (3)
  1. BENYLIN [Suspect]
     Indication: NASOPHARYNGITIS
     Dosage: TOOK 2 CAPLETS IN AFTERNOON, AND 5 HOURS LATER TOOK 1 CAPLET (BEFORE 6PM)
     Route: 048
     Dates: start: 20120116, end: 20120116
  2. ALESSE [Concomitant]
     Indication: CONTRACEPTION
     Dates: start: 20110101
  3. ALESSE [Concomitant]
     Dates: start: 20090101, end: 20110101

REACTIONS (6)
  - LOSS OF CONSCIOUSNESS [None]
  - HYPOAESTHESIA [None]
  - DIZZINESS [None]
  - NAUSEA [None]
  - DIARRHOEA [None]
  - INSOMNIA [None]
